FAERS Safety Report 17125764 (Version 2)
Quarter: 2019Q4

REPORT INFORMATION
  Report Type: Spontaneous
  Country: US (occurrence: US)
  Receive Date: 20191208
  Receipt Date: 20191226
  Transmission Date: 20200122
  Serious: No
  Sender: FDA-Public Use
  Company Number: US-AMAG PHARMACEUTICALS, INC.-AMAG201906188

PATIENT
  Age: 29 Year
  Sex: Female
  Weight: 90.8 kg

DRUGS (1)
  1. MAKENA [Suspect]
     Active Substance: HYDROXYPROGESTERONE CAPROATE
     Indication: PREMATURE DELIVERY
     Route: 058
     Dates: start: 20190920, end: 20191108

REACTIONS (3)
  - Anxiety [Unknown]
  - Dyspnoea [Unknown]
  - Palpitations [Unknown]

NARRATIVE: CASE EVENT DATE: 20191108
